FAERS Safety Report 9228259 (Version 1)
Quarter: 2013Q1

REPORT INFORMATION
  Report Type: Spontaneous
  Country: US (occurrence: None)
  Receive Date: 20121024
  Receipt Date: 20121024
  Transmission Date: 20140127
  Serious: Yes (Other)
  Sender: FDA-Public Use
  Company Number: DSA_57774_2012

PATIENT
  Sex: Male

DRUGS (2)
  1. WELLBUTRIN (NOT SPECIFIED) [Suspect]
     Indication: DEPRESSION
     Route: 048
     Dates: start: 201201
  2. ABILIFY (UNKNOWN) [Concomitant]

REACTIONS (1)
  - Liver function test abnormal [None]
